FAERS Safety Report 6825247-6 (Version None)
Quarter: 2010Q3

REPORT INFORMATION
  Report Type: 
  Country: None (occurrence: None)
  Receive Date: 20100708
  Receipt Date: 20061222
  Transmission Date: 20110219
  Serious: No
  Sender: FDA-Public Use
  Company Number: US-PFIZER INC-2007001324

PATIENT
  Age: 38 Year
  Sex: Male
  Weight: 78.02 kg

DRUGS (1)
  1. CHANTIX [Suspect]
     Indication: SMOKING CESSATION THERAPY
     Dates: start: 20061222

REACTIONS (2)
  - FEELING HOT [None]
  - HYPERHIDROSIS [None]
